FAERS Safety Report 10172494 (Version 1)
Quarter: 2014Q2

REPORT INFORMATION
  Report Type: Spontaneous
  Country: US (occurrence: US)
  Receive Date: 20140515
  Receipt Date: 20140515
  Transmission Date: 20141212
  Serious: No
  Sender: FDA-Public Use
  Company Number: US-009507513-1405USA003408

PATIENT
  Sex: Female

DRUGS (3)
  1. JANUMET [Suspect]
     Route: 048
  2. METFORMIN [Suspect]
  3. LANTUS [Suspect]

REACTIONS (2)
  - Vision blurred [Unknown]
  - Blood glucose increased [Unknown]
